FAERS Safety Report 4877482-4 (Version None)
Quarter: 2006Q1

REPORT INFORMATION
  Report Type: 
  Country: None (occurrence: None)
  Receive Date: 20060111
  Receipt Date: 20060104
  Transmission Date: 20060701
  Serious: Yes (Hospitalization)
  Sender: FDA-Public Use
  Company Number: DE-SANOFI-SYNTHELABO-A04200600008

PATIENT
  Sex: Male

DRUGS (3)
  1. ELOXATIN [Suspect]
     Indication: COLORECTAL CANCER
     Route: 041
     Dates: start: 20051221, end: 20051221
  2. FLUOROURACIL [Suspect]
     Indication: COLORECTAL CANCER
     Route: 041
     Dates: start: 20051221
  3. FOLINIC ACID [Suspect]
     Indication: COLORECTAL CANCER
     Route: 041
     Dates: start: 20051221, end: 20051221

REACTIONS (1)
  - ATRIOVENTRICULAR BLOCK [None]
